FAERS Safety Report 8195748-X (Version None)
Quarter: 2012Q1

REPORT INFORMATION
  Report Type: 
  Country: None (occurrence: None)
  Receive Date: 20120308
  Receipt Date: 20120228
  Transmission Date: 20120608
  Serious: Yes (Hospitalization, Other)
  Sender: FDA-Public Use
  Company Number: FR-PFIZER INC-2012031996

PATIENT
  Age: 80 Year
  Sex: Male

DRUGS (11)
  1. POTASSIUM CHLORIDE [Concomitant]
  2. OFLOXACIN [Concomitant]
     Dosage: UNK
     Dates: end: 20120101
  3. PREVISCAN [Concomitant]
  4. PANTOPRAZOLE [Concomitant]
  5. RISPERDAL [Suspect]
     Indication: PRODUCT USED FOR UNKNOWN INDICATION
     Dosage: UNK
     Route: 048
     Dates: end: 20120101
  6. LEUPRORELIN ACETATE [Concomitant]
  7. CLAFORAN [Concomitant]
     Dosage: UNK
     Dates: end: 20120101
  8. CORDARONE [Suspect]
     Indication: PRODUCT USED FOR UNKNOWN INDICATION
     Dosage: 200 MG, DAILY
     Route: 048
     Dates: end: 20120101
  9. LASIX [Suspect]
     Indication: PRODUCT USED FOR UNKNOWN INDICATION
     Dosage: UNK
     Route: 048
     Dates: end: 20120101
  10. CANDESARTAN CILEXETIL [Suspect]
     Indication: PRODUCT USED FOR UNKNOWN INDICATION
     Dosage: UNK
     Route: 048
     Dates: end: 20120101
  11. ACETAMINOPHEN [Suspect]
     Dosage: UNK
     Route: 048
     Dates: end: 20120101

REACTIONS (4)
  - PANCREATITIS ACUTE [None]
  - HYPOTHERMIA [None]
  - HYPERPARATHYROIDISM [None]
  - SEPTIC SHOCK [None]
